FAERS Safety Report 18078540 (Version 3)
Quarter: 2021Q2

REPORT INFORMATION
  Report Type: Spontaneous
  Country: NL (occurrence: NL)
  Receive Date: 20200728
  Receipt Date: 20210629
  Transmission Date: 20210717
  Serious: Yes (Other)
  Sender: FDA-Public Use
  Company Number: NL-TEVA-2020-NL-1805937

PATIENT
  Age: 27 Year
  Sex: Female

DRUGS (1)
  1. DEXAMETHASONE. [Suspect]
     Active Substance: DEXAMETHASONE
     Indication: PERSISTENT CORNEAL EPITHELIAL DEFECT
     Route: 047

REACTIONS (3)
  - Corneal scar [Not Recovered/Not Resolved]
  - Fusarium infection [Recovered/Resolved]
  - Eye irritation [Recovered/Resolved]
